FAERS Safety Report 11326032 (Version 1)
Quarter: 2015Q3

REPORT INFORMATION
  Report Type: Spontaneous
  Country: US (occurrence: None)
  Receive Date: 20150729
  Receipt Date: 20150729
  Transmission Date: 20151125
  Serious: Yes (Hospitalization)
  Sender: FDA-Public Use
  Company Number: HA15-203-AE

PATIENT
  Age: 39 Year
  Sex: Female

DRUGS (5)
  1. AUGMENTIN [Concomitant]
     Active Substance: AMOXICILLIN\CLAVULANATE POTASSIUM
  2. METOPROLOL [Concomitant]
     Active Substance: METOPROLOL
  3. ASPIRIN. [Concomitant]
     Active Substance: ASPIRIN
  4. SMZ/TMP TABLETS, USP 800MG/160MG (AMNEAL) [Suspect]
     Active Substance: SULFAMETHOXAZOLE\TRIMETHOPRIM
     Indication: ABSCESS
     Dosage: 1 TABLET BID, ORAL
     Route: 048
     Dates: start: 201504, end: 20150710
  5. HYDROXYZINE [Concomitant]
     Active Substance: HYDROXYZINE\HYDROXYZINE HYDROCHLORIDE

REACTIONS (13)
  - Asthenia [None]
  - Abscess [None]
  - Decreased appetite [None]
  - Dizziness [None]
  - Feeling abnormal [None]
  - Hypertension [None]
  - Sinus tachycardia [None]
  - Abasia [None]
  - Insomnia [None]
  - Drug hypersensitivity [None]
  - Fatigue [None]
  - Anxiety [None]
  - Cold sweat [None]

NARRATIVE: CASE EVENT DATE: 20150709
